FAERS Safety Report 23611438 (Version 1)
Quarter: 2024Q1

REPORT INFORMATION
  Report Type: Spontaneous
  Country: US (occurrence: None)
  Receive Date: 20240308
  Receipt Date: 20240308
  Transmission Date: 20240410
  Serious: Yes (Hospitalization)
  Sender: FDA-Public Use
  Company Number: None

PATIENT
  Age: 63 Year
  Sex: Male

DRUGS (8)
  1. REPATHA [Suspect]
     Active Substance: EVOLOCUMAB
     Dosage: OTHER FREQUENCY : 14 DAYS;?
     Route: 058
     Dates: start: 20211102
  2. FENOFIBRATE [Concomitant]
  3. LISINOPRIL [Concomitant]
  4. OZEMPIC [Concomitant]
     Active Substance: SEMAGLUTIDE
  5. SOLIQUA [Concomitant]
  6. WARFRAIN [Concomitant]
  7. METOPROLOL [Concomitant]
  8. ALPRAZOLAM [Concomitant]

REACTIONS (1)
  - Cerebrovascular accident [None]

NARRATIVE: CASE EVENT DATE: 20240301
